FAERS Safety Report 6649224-3 (Version None)
Quarter: 2010Q1

REPORT INFORMATION
  Report Type: 
  Country: None (occurrence: None)
  Receive Date: 20100324
  Receipt Date: 20100310
  Transmission Date: 20100710
  Serious: Yes (Hospitalization, Other)
  Sender: FDA-Public Use
  Company Number: B0619874A

PATIENT
  Sex: Male
  Weight: 98 kg

DRUGS (5)
  1. NIQUITIN 21MG [Suspect]
     Dosage: 2PAT PER DAY
     Route: 062
     Dates: start: 20091027, end: 20091216
  2. NIQUITIN 21MG [Suspect]
     Dosage: 21MG PER DAY
     Route: 062
     Dates: start: 20100111
  3. SPIRIVA [Concomitant]
  4. BECLOMETHASONE DIPROPIONATE [Concomitant]
  5. FORADIL [Concomitant]

REACTIONS (5)
  - ACUTE CORONARY SYNDROME [None]
  - ARTERIAL STENOSIS [None]
  - EMBOLISM [None]
  - INFARCTION [None]
  - OVERDOSE [None]
